FAERS Safety Report 16065195 (Version 1)
Quarter: 2019Q1

REPORT INFORMATION
  Report Type: Spontaneous
  Country: GB (occurrence: GB)
  Receive Date: 20190313
  Receipt Date: 20190313
  Transmission Date: 20190418
  Serious: Yes (Hospitalization)
  Sender: FDA-Public Use
  Company Number: GB-ROCHE-2281824

PATIENT
  Age: 63 Year
  Sex: Female

DRUGS (1)
  1. TRASTUZUMAB. [Suspect]
     Active Substance: TRASTUZUMAB
     Indication: PRODUCT USED FOR UNKNOWN INDICATION
     Route: 042
     Dates: start: 20190109

REACTIONS (3)
  - Headache [Unknown]
  - Neck pain [Unknown]
  - Chills [Unknown]

NARRATIVE: CASE EVENT DATE: 20190109
